FAERS Safety Report 4341996-6 (Version None)
Quarter: 2004Q1

REPORT INFORMATION
  Report Type: 
  Country: None (occurrence: None)
  Receive Date: 20040329
  Receipt Date: 20040203
  Transmission Date: 20041129
  Serious: No
  Sender: FDA-Public Use
  Company Number: 04P-163-0249197-00

PATIENT
  Age: 65 Year
  Sex: Female

DRUGS (7)
  1. HUMIRA [Suspect]
     Indication: RHEUMATOID ARTHRITIS
     Dosage: 40 MG, 1 IN 2 WK, SUBCUTANEOUS
     Route: 058
     Dates: start: 20030601, end: 20030819
  2. HUMIRA [Suspect]
     Indication: RHEUMATOID ARTHRITIS
     Dosage: 40 MG, 1 IN 2 WK, SUBCUTANEOUS
     Route: 058
     Dates: start: 20031101
  3. LEFLUNOMIDE [Concomitant]
  4. BUCINDOLOL HYDROCHLORIDE [Concomitant]
  5. METOPROLOL SUCCINATE [Concomitant]
  6. PANTOPRAZOLE [Concomitant]
  7. AMLODIPINE BESYLATE [Concomitant]

REACTIONS (1)
  - INJECTION SITE BURNING [None]
